FAERS Safety Report 4898466-6 (Version None)
Quarter: 2006Q1

REPORT INFORMATION
  Report Type: 
  Country: None (occurrence: None)
  Receive Date: 20060127
  Receipt Date: 20060112
  Transmission Date: 20060701
  Serious: Yes (Other)
  Sender: FDA-Public Use
  Company Number: US200601002123

PATIENT
  Age: 72 Year
  Sex: Female

DRUGS (4)
  1. FORTEO [Suspect]
     Indication: OSTEOPOROSIS
     Dates: start: 20051214
  2. FORTEO [Concomitant]
  3. EXCEDRIN/USA/ (ACETYLSALICYLIC ACID, CAFFEINE, PARACETAMOL) [Concomitant]
  4. ANTIHYPERTENSIVES [Concomitant]

REACTIONS (9)
  - CONDITION AGGRAVATED [None]
  - DIZZINESS [None]
  - EPISTAXIS [None]
  - FRUSTRATION [None]
  - HYPERTENSION [None]
  - IRRITABILITY [None]
  - MOUTH HAEMORRHAGE [None]
  - PHARMACEUTICAL PRODUCT COMPLAINT [None]
  - TREATMENT NONCOMPLIANCE [None]
